FAERS Safety Report 21506576 (Version 1)
Quarter: 2022Q4

REPORT INFORMATION
  Report Type: Report from Study
  Country: US (occurrence: US)
  Receive Date: 20221026
  Receipt Date: 20221026
  Transmission Date: 20230113
  Serious: No
  Sender: FDA-Public Use
  Company Number: US-ABBVIE-4161221

PATIENT
  Age: 72 Year
  Sex: Male

DRUGS (9)
  1. IMBRUVICA [Suspect]
     Active Substance: IBRUTINIB
     Indication: Mantle cell lymphoma
     Route: 048
     Dates: start: 20220917, end: 2022
  2. guaiFENesin-Codeine Oral Solution 1 [Concomitant]
     Indication: Product used for unknown indication
  3. daily Multiple Vitamins Oral Tablet [Concomitant]
     Indication: Product used for unknown indication
  4. Dronabinol Oral Capsule 2.5 MG [Concomitant]
     Indication: Product used for unknown indication
  5. AMOXICILLIN\CLAVULANATE POTASSIUM [Concomitant]
     Active Substance: AMOXICILLIN\CLAVULANATE POTASSIUM
     Indication: Product used for unknown indication
  6. Gabapentin Oral Tablet 600 MG [Concomitant]
     Indication: Product used for unknown indication
     Route: 048
  7. prednisone Oral Tablet 50 MG [Concomitant]
     Indication: Product used for unknown indication
     Route: 048
  8. Polymyxin B-Trimethoprim Ophthalmic [Concomitant]
     Indication: Product used for unknown indication
  9. Benzonatate Oral Capsule 100 MG [Concomitant]
     Indication: Product used for unknown indication

REACTIONS (1)
  - Skin lesion [Recovering/Resolving]

NARRATIVE: CASE EVENT DATE: 20221007
